FAERS Safety Report 5690542-3 (Version None)
Quarter: 2008Q1

REPORT INFORMATION
  Report Type: 
  Country: None (occurrence: None)
  Receive Date: 20080331
  Receipt Date: 20080331
  Transmission Date: 20080703
  Serious: No
  Sender: FDA-Public Use
  Company Number: None

PATIENT
  Age: 2 Year
  Sex: Male
  Weight: 14.0615 kg

DRUGS (1)
  1. SINGULAIR [Suspect]
     Dosage: 4 MG ONCE PER DAY
     Dates: start: 20080320, end: 20080328

REACTIONS (5)
  - ABNORMAL BEHAVIOUR [None]
  - AGGRESSION [None]
  - MOOD SWINGS [None]
  - PERSONALITY CHANGE [None]
  - SLEEP TERROR [None]
